FAERS Safety Report 6156072-X (Version None)
Quarter: 2009Q2

REPORT INFORMATION
  Report Type: 
  Country: None (occurrence: None)
  Receive Date: 20090415
  Receipt Date: 20090403
  Transmission Date: 20091009
  Serious: Yes (Hospitalization, Other)
  Sender: FDA-Public Use
  Company Number: DK-PFIZER INC-2009169279

PATIENT

DRUGS (4)
  1. LYRICA [Suspect]
     Indication: POST-TRAUMATIC STRESS DISORDER
     Route: 048
     Dates: start: 20071110
  2. LYRICA [Suspect]
     Indication: GENERALISED ANXIETY DISORDER
     Dosage: 25 MG, 1X/DAY
  3. ALPRAZOLAM [Concomitant]
     Route: 048
     Dates: start: 20071110
  4. SERTRALINE [Concomitant]
     Route: 048
     Dates: start: 20071110

REACTIONS (17)
  - BLOOD GLUCOSE FLUCTUATION [None]
  - BLOOD POTASSIUM DECREASED [None]
  - CHROMATURIA [None]
  - CONFUSIONAL STATE [None]
  - CONSTIPATION [None]
  - DISTURBANCE IN ATTENTION [None]
  - DIZZINESS [None]
  - FATIGUE [None]
  - GASTROOESOPHAGEAL REFLUX DISEASE [None]
  - HOT FLUSH [None]
  - LOSS OF CONSCIOUSNESS [None]
  - NAUSEA [None]
  - ORTHOSTATIC HYPOTENSION [None]
  - PALPITATIONS [None]
  - PERIPHERAL COLDNESS [None]
  - URINARY RETENTION [None]
  - URINE ODOUR ABNORMAL [None]
